FAERS Safety Report 14350038 (Version 1)
Quarter: 2018Q1

REPORT INFORMATION
  Report Type: Spontaneous
  Country: US (occurrence: US)
  Receive Date: 20180103
  Receipt Date: 20180103
  Transmission Date: 20180509
  Serious: Yes (Other)
  Sender: FDA-Public Use
  Company Number: None

PATIENT
  Age: 24 Year
  Sex: Female
  Weight: 55.35 kg

DRUGS (1)
  1. BUPRENORPHINE/NALOXONE [Suspect]
     Active Substance: BUPRENORPHINE\NALOXONE
     Indication: DRUG DEPENDENCE
     Route: 060
     Dates: start: 20170601, end: 20170622

REACTIONS (5)
  - Skin abrasion [None]
  - Skin exfoliation [None]
  - Dry skin [None]
  - Erythema [None]
  - Gingival erythema [None]

NARRATIVE: CASE EVENT DATE: 20170609
